FAERS Safety Report 6868906-1 (Version None)
Quarter: 2010Q3

REPORT INFORMATION
  Report Type: 
  Country: None (occurrence: None)
  Receive Date: 20100722
  Receipt Date: 20080804
  Transmission Date: 20110219
  Serious: No
  Sender: FDA-Public Use
  Company Number: US-PFIZER INC-2008052420

PATIENT
  Sex: Female
  Weight: 97.7 kg

DRUGS (4)
  1. CHANTIX [Suspect]
     Indication: SMOKING CESSATION THERAPY
     Route: 048
     Dates: start: 20080614
  2. SYNTHROID [Concomitant]
     Indication: HYPOTHYROIDISM
  3. COMBIVENT [Concomitant]
  4. ALBUTEROL [Concomitant]

REACTIONS (3)
  - EYE OEDEMA [None]
  - LACRIMATION INCREASED [None]
  - VISION BLURRED [None]
